FAERS Safety Report 4735536-7 (Version None)
Quarter: 2005Q3

REPORT INFORMATION
  Report Type: 
  Country: None (occurrence: None)
  Receive Date: 20050802
  Receipt Date: 20050718
  Transmission Date: 20060218
  Serious: Yes (Death)
  Sender: FDA-Public Use
  Company Number: S04-USA-06682-01

PATIENT
  Age: 28 Year
  Sex: Male
  Weight: 77.5651 kg

DRUGS (12)
  1. CELEXA [Suspect]
     Dosage: 40 MG QD PO
     Route: 048
  2. CELEXA [Suspect]
     Dates: end: 20040804
  3. COMBIVIR [Suspect]
     Indication: HIV INFECTION
     Dates: end: 20050804
  4. VIRACEPT [Suspect]
     Indication: HIV INFECTION
     Dosage: 1250 MG BID PO
     Route: 048
     Dates: end: 20050804
  5. DEPAKOTE [Concomitant]
  6. LIPITOR [Concomitant]
  7. ATIVAN [Concomitant]
  8. ZYPREXA [Concomitant]
  9. NIZORAL SHAMPOO (KETOCONAZOLE) [Concomitant]
  10. BENADRYL ELIXIR (DIPHENHYDRAMINE) [Concomitant]
  11. TYLENOL [Concomitant]
  12. MULTI-VITAMIN [Concomitant]

REACTIONS (9)
  - BLOOD ALCOHOL INCREASED [None]
  - CORONARY ARTERY ATHEROSCLEROSIS [None]
  - DRUG INTERACTION [None]
  - DRUG TOXICITY [None]
  - LOSS OF CONSCIOUSNESS [None]
  - PNEUMONIA [None]
  - SPLENOMEGALY [None]
  - UPPER RESPIRATORY TRACT INFECTION [None]
  - VENTRICULAR HYPERTROPHY [None]
